FAERS Safety Report 8927373 (Version 1)
Quarter: 2012Q4

REPORT INFORMATION
  Report Type: 
  Country: IN (occurrence: IN)
  Receive Date: 20121127
  Receipt Date: 20121127
  Transmission Date: 20130627
  Serious: Yes (Death, Other)
  Sender: FDA-Public Use
  Company Number: PHHY2012IN092946

PATIENT
  Sex: Male

DRUGS (1)
  1. TASIGNA [Suspect]
     Indication: CHRONIC MYELOID LEUKAEMIA
     Dosage: 150 mg, BID
     Route: 048
     Dates: start: 20120918

REACTIONS (5)
  - Pneumonia [Fatal]
  - Blast crisis in myelogenous leukaemia [Unknown]
  - Blood count abnormal [Unknown]
  - White blood cell count decreased [Unknown]
  - Hyperglycaemia [Unknown]
